FAERS Safety Report 5025500-5 (Version None)
Quarter: 2006Q2

REPORT INFORMATION
  Report Type: 
  Country: None (occurrence: None)
  Receive Date: 20060608
  Receipt Date: 20060526
  Transmission Date: 20061013
  Serious: Yes (Hospitalization)
  Sender: FDA-Public Use
  Company Number: 200613775BWH

PATIENT
  Age: 62 Year
  Sex: Male
  Weight: 78.9259 kg

DRUGS (1)
  1. NEXAVAR [Suspect]
     Indication: RENAL CANCER METASTATIC
     Dosage: 400 MG, BID, ORAL
     Route: 048
     Dates: start: 20060509, end: 20060525

REACTIONS (5)
  - BLOOD POTASSIUM INCREASED [None]
  - DISORIENTATION [None]
  - FLUID INTAKE REDUCED [None]
  - ORAL INTAKE REDUCED [None]
  - WEIGHT DECREASED [None]
